FAERS Safety Report 20953870 (Version 1)
Quarter: 2022Q2

REPORT INFORMATION
  Report Type: Spontaneous
  Country: CA (occurrence: CA)
  Receive Date: 20220614
  Receipt Date: 20220614
  Transmission Date: 20220721
  Serious: Yes (Other)
  Sender: FDA-Public Use
  Company Number: CA-ABBVIE-22K-028-4430046-00

PATIENT
  Age: 69 Year
  Sex: Male
  Weight: 100 kg

DRUGS (2)
  1. HUMIRA [Suspect]
     Active Substance: ADALIMUMAB
     Indication: Psoriatic arthropathy
     Route: 058
  2. METHOTREXATE [Suspect]
     Active Substance: METHOTREXATE
     Indication: Psoriatic arthropathy
     Route: 048

REACTIONS (25)
  - Chest X-ray abnormal [Recovered/Resolved]
  - Double stranded DNA antibody positive [Recovered/Resolved]
  - Osteoarthritis [Recovered/Resolved]
  - Red cell distribution width increased [Recovered/Resolved]
  - Blood immunoglobulin A increased [Recovered/Resolved]
  - Blood immunoglobulin G increased [Recovered/Resolved]
  - Anti-cyclic citrullinated peptide antibody positive [Recovered/Resolved]
  - Rheumatoid factor increased [Recovered/Resolved]
  - Glycosylated haemoglobin increased [Recovered/Resolved]
  - Joint noise [Recovered/Resolved]
  - Joint range of motion decreased [Recovered/Resolved]
  - Knee deformity [Recovered/Resolved]
  - Lymphocyte count decreased [Recovered/Resolved]
  - Musculoskeletal stiffness [Recovered/Resolved]
  - Antibody test positive [Recovered/Resolved]
  - Alanine aminotransferase increased [Recovered/Resolved]
  - Haemoglobin decreased [Recovered/Resolved]
  - Haematocrit decreased [Recovered/Resolved]
  - Tendon disorder [Recovered/Resolved]
  - Interstitial lung disease [Recovered/Resolved]
  - Aspartate aminotransferase increased [Recovered/Resolved]
  - Hypertension [Recovered/Resolved]
  - Arthralgia [Recovered/Resolved]
  - Dyspnoea exertional [Recovered/Resolved]
  - Blood triglycerides increased [Recovered/Resolved]
